FAERS Safety Report 10287087 (Version 1)
Quarter: 2014Q3

REPORT INFORMATION
  Report Type: Spontaneous
  Country: US (occurrence: US)
  Receive Date: 20140709
  Receipt Date: 20140709
  Transmission Date: 20150326
  Serious: Yes (Hospitalization)
  Sender: FDA-Public Use
  Company Number: US-LUNDBECK-DKLU1101455

PATIENT
  Sex: Female

DRUGS (3)
  1. ONFI [Suspect]
     Active Substance: CLOBAZAM
     Indication: EPILEPSY
     Dates: start: 20140417, end: 20140628
  2. ZONEGRAN [Concomitant]
     Active Substance: ZONISAMIDE
     Indication: PRODUCT USED FOR UNKNOWN INDICATION
  3. TEGRETOL [Concomitant]
     Active Substance: CARBAMAZEPINE
     Indication: PRODUCT USED FOR UNKNOWN INDICATION

REACTIONS (11)
  - Depression [Unknown]
  - Hostility [Unknown]
  - Aggression [Unknown]
  - Agitation [Unknown]
  - Amnesia [Unknown]
  - Insomnia [Unknown]
  - Social avoidant behaviour [Unknown]
  - Hallucination [Unknown]
  - Negative thoughts [Unknown]
  - Eating disorder [Unknown]
  - Decreased interest [Unknown]
